FAERS Safety Report 8299435-9 (Version None)
Quarter: 2012Q2

REPORT INFORMATION
  Report Type: 
  Country: None (occurrence: None)
  Receive Date: 20120419
  Receipt Date: 20120416
  Transmission Date: 20120825
  Serious: Yes (Hospitalization)
  Sender: FDA-Public Use
  Company Number: US-TEVA-333844USA

PATIENT
  Age: 74 Year
  Sex: Male

DRUGS (3)
  1. ACETAMINOPHEN [Interacting]
     Indication: BACK PAIN
     Dosage: 500MG AS NEEDED
     Route: 065
  2. WARFARIN SODIUM [Suspect]
     Indication: ATRIAL FIBRILLATION
     Dosage: 2.5 MILLIGRAM; 2.5MG DAILY
     Route: 065
  3. FENTANYL [Concomitant]
     Indication: BACK PAIN
     Route: 062

REACTIONS (3)
  - HAEMATOMA [None]
  - DRUG INTERACTION [None]
  - BACK PAIN [None]
